FAERS Safety Report 23136589 (Version 1)
Quarter: 2023Q4

REPORT INFORMATION
  Report Type: Spontaneous
  Country: US (occurrence: US)
  Receive Date: 20231102
  Receipt Date: 20231102
  Transmission Date: 20240109
  Serious: No
  Sender: FDA-Public Use
  Company Number: US-OYSTER POINT PHARMA, INC-US-OYS-23-001180

PATIENT
  Age: 73 Year
  Sex: Female

DRUGS (5)
  1. TYRVAYA [Suspect]
     Active Substance: VARENICLINE TARTRATE
     Indication: Product used for unknown indication
     Dosage: 0.03 MILLIGRAM, UNK
     Route: 045
     Dates: start: 20230817
  2. TYRVAYA [Suspect]
     Active Substance: VARENICLINE TARTRATE
     Dosage: 0.03 MILLIGRAM, UNK
     Route: 045
  3. LEVOTHYROXINE [Concomitant]
     Active Substance: LEVOTHYROXINE
     Indication: Product used for unknown indication
     Dosage: UNK, UNK
     Route: 065
  4. VITAMINS NOS [Concomitant]
     Active Substance: VITAMINS
     Indication: Product used for unknown indication
     Dosage: UNK, UNK
     Route: 065
  5. TYLENOL [Concomitant]
     Active Substance: ACETAMINOPHEN
     Indication: Product used for unknown indication
     Dosage: UNK, UNK
     Route: 045

REACTIONS (7)
  - Dry eye [Unknown]
  - Foreign body sensation in eyes [Unknown]
  - Rhinorrhoea [Unknown]
  - Ocular hyperaemia [Recovering/Resolving]
  - Sneezing [Recovered/Resolved]
  - Drug ineffective [Unknown]
  - Intentional product misuse [Unknown]

NARRATIVE: CASE EVENT DATE: 20230817
